FAERS Safety Report 23402149 (Version 1)
Quarter: 2024Q1

REPORT INFORMATION
  Report Type: Other
  Country: PT (occurrence: None)
  Receive Date: 20240115
  Receipt Date: 20240115
  Transmission Date: 20240410
  Serious: Yes (Death)
  Sender: FDA-Public Use
  Company Number: PT-ROCHE-3489989

PATIENT
  Age: 66 Year
  Sex: Female
  Weight: 57 kg

DRUGS (14)
  1. FEMARA [Suspect]
     Active Substance: LETROZOLE
     Indication: HER2 positive breast cancer
     Dosage: MOST RECENT DOSE /MAY/2019
     Route: 048
     Dates: start: 20180922
  2. TAXOL [Suspect]
     Active Substance: PACLITAXEL
     Indication: HER2 positive breast cancer
     Dosage: MOST RECENT DOSE PRIOR TO THE EVENT: 16/JAN/2020
     Route: 042
     Dates: start: 20180621, end: 20180906
  3. PERJETA [Suspect]
     Active Substance: PERTUZUMAB
     Indication: HER2 positive breast cancer
     Dosage: MOST RECENT DOSE 03/MAY/2019
     Route: 042
     Dates: start: 20180621
  4. HERCEPTIN [Suspect]
     Active Substance: TRASTUZUMAB
     Indication: HER2 positive breast cancer
     Dosage: MOST RECENT DOSE PRIOR TO THE EVENT: 9/AUG/2019
     Route: 058
     Dates: start: 20180621, end: 20190503
  5. KADCYLA [Suspect]
     Active Substance: ADO-TRASTUZUMAB EMTANSINE
     Indication: HER2 positive breast cancer
     Dosage: MOST RECENT DOSE 19/JUL/2019
     Route: 042
     Dates: start: 20190531
  6. XELODA [Suspect]
     Active Substance: CAPECITABINE
     Indication: HER2 positive breast cancer
     Dosage: MOST RECENT DOSE 18/DEC/2019
     Route: 048
     Dates: start: 20190809
  7. PARAPLATIN [Suspect]
     Active Substance: CARBOPLATIN
     Indication: HER2 positive breast cancer
     Dosage: MOST RECENT DOSE PRIOR TO THE EVENT: 13/FEB/2020
     Route: 042
     Dates: start: 20200116, end: 20200123
  8. ALLOPURINOL [Concomitant]
     Active Substance: ALLOPURINOL
     Dosage: ONGOING = NOT CHECKED
     Dates: end: 20200331
  9. BISOPROLOL [Concomitant]
     Active Substance: BISOPROLOL\BISOPROLOL FUMARATE
     Dosage: ONGOING = NOT CHECKED
     Dates: end: 20200331
  10. CAPTOPRIL [Concomitant]
     Active Substance: CAPTOPRIL
     Dosage: ONGOING = NOT CHECKED
     Dates: end: 20200331
  11. DIAZEPAM [Concomitant]
     Active Substance: DIAZEPAM
     Dosage: ONGOING = NOT CHECKED
     Dates: end: 20200331
  12. FENOFIBRATE [Concomitant]
     Active Substance: FENOFIBRATE
     Dosage: ONGOING = NOT CHECKED
     Dates: end: 20200331
  13. INDAPAMIDE [Concomitant]
     Active Substance: INDAPAMIDE
     Dosage: ONGOING = NOT CHECKED
     Dates: end: 20200331
  14. LEVOTHYROXINE [Concomitant]
     Active Substance: LEVOTHYROXINE
     Dosage: ONGOING = NOT CHECKED
     Dates: end: 20200331

REACTIONS (1)
  - Death [Fatal]

NARRATIVE: CASE EVENT DATE: 20200331
